FAERS Safety Report 5848096-4 (Version None)
Quarter: 2008Q3

REPORT INFORMATION
  Report Type: 
  Country: None (occurrence: None)
  Receive Date: 20080818
  Receipt Date: 20080814
  Transmission Date: 20090109
  Serious: Yes (Other)
  Sender: FDA-Public Use
  Company Number: A0742078A

PATIENT
  Age: 45 Year
  Sex: Female

DRUGS (2)
  1. ALLI [Suspect]
     Indication: WEIGHT LOSS DIET
     Route: 048
     Dates: end: 20080805
  2. EFFEXOR [Concomitant]

REACTIONS (2)
  - BREAST CANCER RECURRENT [None]
  - NEOPLASM [None]
